FAERS Safety Report 7804017-6 (Version None)
Quarter: 2011Q4

REPORT INFORMATION
  Report Type: 
  Country: None (occurrence: None)
  Receive Date: 20111010
  Receipt Date: 20110927
  Transmission Date: 20120403
  Serious: Yes (Other)
  Sender: FDA-Public Use
  Company Number: DE-RANBAXY-2011R1-48624

PATIENT
  Age: 55 Year
  Sex: Male
  Weight: 86 kg

DRUGS (1)
  1. DOXYCYCLINE HCL [Suspect]
     Indication: BRONCHITIS
     Dosage: 200 MG/DAY
     Route: 048
     Dates: start: 20110309, end: 20110319

REACTIONS (1)
  - TRANSAMINASES INCREASED [None]
